FAERS Safety Report 8461691-1 (Version None)
Quarter: 2012Q2

REPORT INFORMATION
  Report Type: 
  Country: None (occurrence: None)
  Receive Date: 20120323
  Receipt Date: 20111007
  Transmission Date: 20120825
  Serious: Yes (Hospitalization)
  Sender: FDA-Public Use
  Company Number: 163-21880-11100988

PATIENT
  Age: 81 Year
  Sex: Male

DRUGS (2)
  1. REVLIMID [Suspect]
     Indication: MYELODYSPLASTIC SYNDROME
     Dosage: 10 MG, DAILY FOR 28 DAYS, PO
     Route: 048
     Dates: start: 20110812
  2. LISINOPRIL [Concomitant]

REACTIONS (1)
  - FULL BLOOD COUNT DECREASED [None]
